FAERS Safety Report 4374613-X (Version None)
Quarter: 2004Q2

REPORT INFORMATION
  Report Type: 
  Country: None (occurrence: None)
  Receive Date: 20040602
  Receipt Date: 20040210
  Transmission Date: 20050107
  Serious: No
  Sender: FDA-Public Use
  Company Number: 200412392BWH

PATIENT
  Age: 78 Year
  Sex: Male
  Weight: 62.5964 kg

DRUGS (8)
  1. LEVITRA [Suspect]
     Indication: ERECTILE DYSFUNCTION
     Dosage: SEE IMAGE
     Route: 048
     Dates: start: 20031201
  2. LEVITRA [Suspect]
     Indication: ERECTILE DYSFUNCTION
     Dosage: SEE IMAGE
     Route: 048
     Dates: start: 20040201
  3. VIAGRA [Concomitant]
  4. NIFEDIPINE [Concomitant]
  5. THEOPHYLLINE [Concomitant]
  6. BRETHINE [Concomitant]
  7. NEXIUM [Concomitant]
  8. LESCOL [Concomitant]

REACTIONS (1)
  - ERECTILE DYSFUNCTION [None]
